FAERS Safety Report 5387061-0 (Version None)
Quarter: 2007Q3

REPORT INFORMATION
  Report Type: 
  Country: None (occurrence: None)
  Receive Date: 20070710
  Receipt Date: 20070703
  Transmission Date: 20080115
  Serious: Yes (Death)
  Sender: FDA-Public Use
  Company Number: 235455K07USA

PATIENT
  Age: 44 Year
  Sex: Female

DRUGS (4)
  1. REBIF [Suspect]
     Indication: MULTIPLE SCLEROSIS
     Dosage: NOT REPORTED, 3 IN 1 WEEKS, SUBCUTANEOUS
     Route: 058
     Dates: start: 20060127, end: 20060616
  2. METHADONE HCL [Suspect]
  3. ANTIHYPERTENSIVE MEDICATIONS [Concomitant]
  4. ANTIDEPRESSANT [Concomitant]

REACTIONS (5)
  - DRUG ABUSER [None]
  - DRUG DEPENDENCE [None]
  - DRUG INTERACTION [None]
  - DRUG PRESCRIBING ERROR [None]
  - DRUG TOXICITY [None]
